FAERS Safety Report 14282802 (Version 2)
Quarter: 2017Q4

REPORT INFORMATION
  Report Type: Spontaneous
  Country: US (occurrence: US)
  Receive Date: 20171213
  Receipt Date: 20171215
  Transmission Date: 20180321
  Serious: Yes (Hospitalization)
  Sender: FDA-Public Use
  Company Number: US-ELI_LILLY_AND_COMPANY-US201712003469

PATIENT
  Age: 42 Year
  Sex: Male

DRUGS (1)
  1. STRATTERA [Suspect]
     Active Substance: ATOMOXETINE HYDROCHLORIDE
     Indication: ATTENTION DEFICIT/HYPERACTIVITY DISORDER
     Dosage: UNK, DAILY
     Route: 048

REACTIONS (3)
  - Drug dose omission [Unknown]
  - Vomiting [Recovered/Resolved]
  - Oesophageal rupture [Recovered/Resolved]

NARRATIVE: CASE EVENT DATE: 20171203
